FAERS Safety Report 21330809 (Version 1)
Quarter: 2022Q3

REPORT INFORMATION
  Report Type: Spontaneous
  Country: US (occurrence: None)
  Receive Date: 20220914
  Receipt Date: 20220914
  Transmission Date: 20221027
  Serious: Yes (Other)
  Sender: FDA-Public Use
  Company Number: 2022A310980

PATIENT
  Age: 69 Year
  Sex: Female
  Weight: 53.1 kg

DRUGS (1)
  1. SYMBICORT [Suspect]
     Active Substance: BUDESONIDE\FORMOTEROL FUMARATE DIHYDRATE
     Indication: Chronic obstructive pulmonary disease
     Dosage: 160/4.5 MCG 120 DOSE INHALER 2 PUFFS TWICE A DAY, 160
     Route: 055
     Dates: start: 2010

REACTIONS (4)
  - Lymphoma [Recovered/Resolved]
  - Lung neoplasm malignant [Recovered/Resolved]
  - Product dose omission issue [Unknown]
  - Device malfunction [Unknown]

NARRATIVE: CASE EVENT DATE: 20120608
